FAERS Safety Report 4304444-8 (Version None)
Quarter: 2004Q1

REPORT INFORMATION
  Report Type: 
  Country: None (occurrence: None)
  Receive Date: 20040225
  Receipt Date: 20040216
  Transmission Date: 20041129
  Serious: Yes (Life-Threatening, Hospitalization)
  Sender: FDA-Public Use
  Company Number: 2004-UK-00153UK

PATIENT
  Age: 19 Year
  Sex: Female
  Weight: 76.2 kg

DRUGS (11)
  1. MORPHINE [Suspect]
  2. THIOPENTAL SODIUM [Suspect]
  3. SUXAMETHONIUM (SUXAMETHONIUM) [Suspect]
  4. FENTANYL [Suspect]
  5. VERAPAMIL [Suspect]
  6. BUPIVACAINE [Suspect]
     Indication: ANAESTHESIA
     Dosage: STRENTGH = 0.5%
  7. CEFUROXIME [Suspect]
  8. FLAGYL [Suspect]
  9. EPHEDRINE (EPHEDRINE) [Suspect]
  10. ONDANSETRON HCL [Suspect]
  11. IODINE (IODINE) [Suspect]

REACTIONS (9)
  - ANAESTHETIC COMPLICATION [None]
  - ERYTHEMA [None]
  - HYPERTENSION [None]
  - HYPOTENSION [None]
  - POST PROCEDURAL COMPLICATION [None]
  - PRURITUS [None]
  - STRIDOR [None]
  - SWELLING FACE [None]
  - WHEEZING [None]
